FAERS Safety Report 11958960 (Version 2)
Quarter: 2018Q2

REPORT INFORMATION
  Report Type: Report from Study
  Country: JP (occurrence: JP)
  Receive Date: 20160126
  Receipt Date: 20180627
  Transmission Date: 20180711
  Serious: Yes (Other)
  Sender: FDA-Public Use
  Company Number: JP-ROCHE-1231974

PATIENT

DRUGS (2)
  1. METHOTREXATE. [Suspect]
     Active Substance: METHOTREXATE
     Indication: RHEUMATOID ARTHRITIS
     Route: 065
  2. TOCILIZUMAB. [Suspect]
     Active Substance: TOCILIZUMAB
     Indication: RHEUMATOID ARTHRITIS
     Route: 042

REACTIONS (20)
  - Skin disorder [Unknown]
  - Poisoning [Unknown]
  - Procedural complication [Unknown]
  - Hepatic function abnormal [Unknown]
  - Benign neoplasm [Unknown]
  - Hepatobiliary disease [Unknown]
  - Musculoskeletal disorder [Unknown]
  - Blood disorder [Unknown]
  - Pneumocystis jirovecii pneumonia [Unknown]
  - Pneumonia bacterial [Unknown]
  - Nasopharyngitis [Unknown]
  - Injury [Unknown]
  - Connective tissue disorder [Unknown]
  - Gastric cancer [Unknown]
  - Respiratory disorder [Unknown]
  - Mediastinal disorder [Unknown]
  - Neoplasm malignant [Unknown]
  - Lymphatic disorder [Unknown]
  - Infection [Unknown]
  - Gastrointestinal disorder [Unknown]
